FAERS Safety Report 5266416-9 (Version None)
Quarter: 2007Q1

REPORT INFORMATION
  Report Type: 
  Country: None (occurrence: None)
  Receive Date: 20070315
  Receipt Date: 20070205
  Transmission Date: 20070707
  Serious: No
  Sender: FDA-Public Use
  Company Number: US-GLAXOSMITHKLINE-A0638345A

PATIENT
  Age: 51 Year
  Sex: Female

DRUGS (2)
  1. FLOVENT [Suspect]
     Indication: ASTHMA
     Dosage: 220MCG ALTERNATE DAYS
     Route: 055
  2. ALBUTEROL [Concomitant]

REACTIONS (2)
  - MALAISE [None]
  - OVERDOSE [None]
